FAERS Safety Report 18030118 (Version 3)
Quarter: 2020Q3

REPORT INFORMATION
  Report Type: Other
  Country: US (occurrence: US)
  Receive Date: 20200715
  Receipt Date: 20200730
  Transmission Date: 20201103
  Serious: Yes (Hospitalization, Other)
  Sender: FDA-Public Use
  Company Number: US-AMAG PHARMACEUTICALS, INC.-AMAG202002402

PATIENT
  Age: 28 Year
  Sex: Female
  Weight: 134.3 kg

DRUGS (1)
  1. MAKENA [Suspect]
     Active Substance: HYDROXYPROGESTERONE CAPROATE
     Indication: PREMATURE DELIVERY
     Route: 058
     Dates: start: 20200306, end: 20200330

REACTIONS (18)
  - Abdominal discomfort [Unknown]
  - Injection site nodule [Unknown]
  - Pelvic pain [Unknown]
  - Product dose omission issue [Unknown]
  - Dyspnoea [Unknown]
  - Pubic pain [Unknown]
  - Pruritus [Unknown]
  - Premature delivery [Recovered/Resolved]
  - Uterine contractions during pregnancy [Recovered/Resolved]
  - Chest pain [Unknown]
  - Breech presentation [Recovered/Resolved]
  - COVID-19 pneumonia [Recovered/Resolved]
  - Vulvovaginal pain [Unknown]
  - Vaginal haemorrhage [Unknown]
  - Pain [Unknown]
  - Product administered at inappropriate site [Unknown]
  - COVID-19 [Recovered/Resolved]
  - Cholelithiasis [Unknown]

NARRATIVE: CASE EVENT DATE: 2020
